FAERS Safety Report 4870406-5 (Version None)
Quarter: 2005Q4

REPORT INFORMATION
  Report Type: 
  Country: None (occurrence: None)
  Receive Date: 20051228
  Receipt Date: 20051207
  Transmission Date: 20060501
  Serious: Yes (Hospitalization)
  Sender: FDA-Public Use
  Company Number: US200512001362

PATIENT
  Age: 67 Year
  Sex: Female

DRUGS (2)
  1. FORTEO [Suspect]
     Indication: OSTEOPOROSIS
     Dates: start: 20050701, end: 20051101
  2. FORTEO [Concomitant]

REACTIONS (6)
  - DIFFICULTY IN WALKING [None]
  - FALL [None]
  - JOINT INJURY [None]
  - LIGAMENT INJURY [None]
  - RIB FRACTURE [None]
  - TENDON INJURY [None]
